FAERS Safety Report 17706543 (Version 2)
Quarter: 2020Q2

REPORT INFORMATION
  Report Type: Report from Study
  Country: AR (occurrence: AR)
  Receive Date: 20200424
  Receipt Date: 20200508
  Transmission Date: 20200714
  Serious: Yes (Hospitalization, Other)
  Sender: FDA-Public Use
  Company Number: NVSC2020AR110672

PATIENT
  Age: 90 Year
  Sex: Female

DRUGS (13)
  1. ENTRESTO [Suspect]
     Active Substance: SACUBITRIL\VALSARTAN
     Dosage: 50 MG (IN THE MORNING AND AT NIGHT)
     Route: 065
     Dates: start: 201908, end: 202001
  2. ENTRESTO [Suspect]
     Active Substance: SACUBITRIL\VALSARTAN
     Indication: CARDIAC FAILURE
     Dosage: 100 MG
     Route: 065
  3. DIOVAN [Concomitant]
     Active Substance: VALSARTAN
     Indication: PRODUCT USED FOR UNKNOWN INDICATION
     Dosage: UNK (160 MG)
     Route: 065
  4. ROSUVAST [Concomitant]
     Indication: PRODUCT USED FOR UNKNOWN INDICATION
     Dosage: 10 MG, QD
     Route: 065
  5. ENTRESTO [Suspect]
     Active Substance: SACUBITRIL\VALSARTAN
     Dosage: 50 MG  (IN THE MORNING AND AT NIGHT)
     Route: 065
  6. DIOVAN [Concomitant]
     Active Substance: VALSARTAN
     Dosage: UNK (320 MG)
     Route: 065
  7. GALVUS [Concomitant]
     Active Substance: VILDAGLIPTIN
     Indication: PRODUCT USED FOR UNKNOWN INDICATION
     Dosage: UNK
     Route: 065
  8. JANUMET [Concomitant]
     Active Substance: METFORMIN HYDROCHLORIDE\SITAGLIPTIN PHOSPHATE
     Indication: PRODUCT USED FOR UNKNOWN INDICATION
     Dosage: 1 DF, QD
     Route: 065
  9. CONCOR [Concomitant]
     Active Substance: BISOPROLOL FUMARATE
     Indication: PRODUCT USED FOR UNKNOWN INDICATION
     Dosage: 2.5 MG, QD
     Route: 065
  10. LASIX [Concomitant]
     Active Substance: FUROSEMIDE
     Indication: PRODUCT USED FOR UNKNOWN INDICATION
     Dosage: 40 MG, QD
     Route: 065
  11. OMEPRAZOLE. [Concomitant]
     Active Substance: OMEPRAZOLE
     Indication: PRODUCT USED FOR UNKNOWN INDICATION
     Dosage: 20 MG, QD
     Route: 065
  12. INCORIL [Concomitant]
     Indication: PRODUCT USED FOR UNKNOWN INDICATION
     Dosage: 120 MG, QD
     Route: 065
  13. XARELTO [Concomitant]
     Active Substance: RIVAROXABAN
     Indication: PRODUCT USED FOR UNKNOWN INDICATION
     Dosage: 15 MG, QD
     Route: 065

REACTIONS (16)
  - Mitral valve disease [Unknown]
  - Wrong technique in product usage process [Unknown]
  - Chest discomfort [Unknown]
  - Heart rate irregular [Unknown]
  - Cardiac valve sclerosis [Unknown]
  - Fluid retention [Unknown]
  - Arrhythmia [Unknown]
  - Dyspnoea [Unknown]
  - Inspiratory capacity abnormal [Unknown]
  - Heart valve stenosis [Unknown]
  - Left ventricular hypertrophy [Unknown]
  - Dilatation atrial [Unknown]
  - Right ventricular dilatation [Unknown]
  - Inferior vena cava dilatation [Unknown]
  - Cardiac failure [Unknown]
  - Pulmonary oedema [Unknown]

NARRATIVE: CASE EVENT DATE: 20200126
